FAERS Safety Report 24651289 (Version 1)
Quarter: 2024Q4

REPORT INFORMATION
  Report Type: Spontaneous
  Country: NL (occurrence: NL)
  Receive Date: 20241122
  Receipt Date: 20241122
  Transmission Date: 20250114
  Serious: Yes (Other)
  Sender: MERCK
  Company Number: NL-009507513-2411NLD006847

PATIENT
  Age: 52 Year
  Sex: Female

DRUGS (1)
  1. PEMBROLIZUMAB [Suspect]
     Active Substance: PEMBROLIZUMAB
     Dosage: UNK

REACTIONS (3)
  - Adrenal insufficiency [Unknown]
  - Radiation necrosis [Unknown]
  - Pulmonary embolism [Unknown]
